FAERS Safety Report 5507720-6 (Version None)
Quarter: 2007Q4

REPORT INFORMATION
  Report Type: 
  Country: None (occurrence: None)
  Receive Date: 20071105
  Receipt Date: 20071105
  Transmission Date: 20080405
  Serious: Yes (Life-Threatening)
  Sender: FDA-Public Use
  Company Number: None

PATIENT
  Age: 41 Year
  Sex: Female
  Weight: 88.4514 kg

DRUGS (1)
  1. AMBIEN CR [Suspect]
     Indication: INSOMNIA

REACTIONS (4)
  - ABNORMAL SLEEP-RELATED EVENT [None]
  - AMNESIA [None]
  - SOMNAMBULISM [None]
  - STUBBORNNESS [None]
